FAERS Safety Report 11259298 (Version 1)
Quarter: 2015Q3

REPORT INFORMATION
  Report Type: Spontaneous
  Country: US (occurrence: None)
  Receive Date: 20150709
  Receipt Date: 20150709
  Transmission Date: 20151125
  Serious: Yes (Other)
  Sender: FDA-Public Use
  Company Number: None

PATIENT
  Age: 22 Year
  Sex: Male

DRUGS (1)
  1. SUCCINYLCHOLINE [Suspect]
     Active Substance: SUCCINYLCHOLINE

REACTIONS (4)
  - Hypersensitivity [None]
  - Extrasystoles [None]
  - Ventricular extrasystoles [None]
  - Ventricular tachycardia [None]

NARRATIVE: CASE EVENT DATE: 20150624
